FAERS Safety Report 22289330 (Version 1)
Quarter: 2023Q2

REPORT INFORMATION
  Report Type: Spontaneous
  Country: US (occurrence: None)
  Receive Date: 20230504
  Receipt Date: 20230504
  Transmission Date: 20230721
  Serious: Yes (Other)
  Sender: FDA-Public Use
  Company Number: None

PATIENT
  Sex: Male

DRUGS (9)
  1. TACROLIMUS [Suspect]
     Active Substance: TACROLIMUS
     Indication: Renal transplant
     Dosage: FREQUENCY : EVERY 12 HOURS;?
     Route: 048
     Dates: start: 20190417
  2. CALC ACETATE CAP [Concomitant]
  3. CELLCEPT [Concomitant]
     Active Substance: MYCOPHENOLATE MOFETIL
  4. HYTRIN CAP [Concomitant]
  5. MYCOPHENOLAT TAB [Concomitant]
  6. NEORAL [Concomitant]
     Active Substance: CYCLOSPORINE
  7. NIFEREX-150 CAP [Concomitant]
  8. PREDNISONE [Concomitant]
     Active Substance: PREDNISONE
  9. PROCRIT [Concomitant]
     Active Substance: ERYTHROPOIETIN

REACTIONS (1)
  - Bell^s palsy [None]
